FAERS Safety Report 16232120 (Version 1)
Quarter: 2019Q2

REPORT INFORMATION
  Report Type: Spontaneous
  Country: US (occurrence: US)
  Receive Date: 20190319
  Receipt Date: 20190319
  Transmission Date: 20190711
  Serious: Yes (Hospitalization, Disabling, Other)
  Sender: FDA-Public Use
  Company Number: None

PATIENT
  Age: 62 Year
  Sex: Female
  Weight: 68.95 kg

DRUGS (1)
  1. LOSARTAN 100MG [Suspect]
     Active Substance: LOSARTAN
     Indication: BLOOD PRESSURE MEASUREMENT
     Dates: start: 20180211, end: 20190313

REACTIONS (3)
  - Product quality issue [None]
  - Visual impairment [None]
  - Neoplasm malignant [None]

NARRATIVE: CASE EVENT DATE: 20180211
